FAERS Safety Report 6344336-6 (Version None)
Quarter: 2009Q3

REPORT INFORMATION
  Report Type: 
  Country: None (occurrence: None)
  Receive Date: 20090903
  Receipt Date: 20090817
  Transmission Date: 20100115
  Serious: Yes (Hospitalization)
  Sender: FDA-Public Use
  Company Number: 2008AL008828

PATIENT
  Age: 72 Year
  Sex: Female

DRUGS (28)
  1. DIGOXIN [Suspect]
     Dosage: 0.125MG, DAILY PO
     Route: 048
  2. DIGOXIN [Suspect]
     Dosage: 0.25MG, IV
     Route: 042
     Dates: start: 20040324
  3. PROPOXYPHENE NAPSYLATE AND ACETAMINOPHEN [Concomitant]
  4. PREVACID [Concomitant]
  5. ALPRAZOLAM [Concomitant]
  6. PROTONIX [Concomitant]
  7. MECLIZINE [Concomitant]
  8. HYDROCODONE [Concomitant]
  9. PROMETHAZINE [Concomitant]
  10. ZITHROMAX [Concomitant]
  11. PACERONE [Concomitant]
  12. AMIODARONE HCL [Concomitant]
  13. WARFARIN SODIUM [Concomitant]
  14. VICODIN [Concomitant]
  15. NAPROXEN [Concomitant]
  16. IBUPROFEN [Concomitant]
  17. PANTOPRAZOLE SODIUM [Concomitant]
  18. PENICILLIN [Concomitant]
  19. DILTIAZEM [Concomitant]
  20. ASPIRIN [Concomitant]
  21. NITROGLYCERIN [Concomitant]
  22. FLURAZEPAM [Concomitant]
  23. ATORVASTATIN CALCIUM [Concomitant]
  24. SPIRIVA [Concomitant]
  25. HYZAAR [Concomitant]
  26. METOPROLOL TARTRATE [Concomitant]
  27. MAALOX [Concomitant]
  28. PROMETHAZINE [Concomitant]

REACTIONS (15)
  - ANAEMIA [None]
  - ARRHYTHMIA [None]
  - ASTHENIA [None]
  - ATRIAL FIBRILLATION [None]
  - BLOOD POTASSIUM INCREASED [None]
  - CARDIOMEGALY [None]
  - CHEST PAIN [None]
  - DIZZINESS [None]
  - DYSPNOEA [None]
  - HIATUS HERNIA [None]
  - HYPERTENSION [None]
  - INJURY [None]
  - LUNG HYPERINFLATION [None]
  - PALPITATIONS [None]
  - TRANSIENT ISCHAEMIC ATTACK [None]
